FAERS Safety Report 8223497-8 (Version None)
Quarter: 2012Q1

REPORT INFORMATION
  Report Type: 
  Country: None (occurrence: None)
  Receive Date: 20120321
  Receipt Date: 20120316
  Transmission Date: 20120608
  Serious: No
  Sender: FDA-Public Use
  Company Number: US-PFIZER INC-2012070174

PATIENT
  Sex: Male

DRUGS (2)
  1. VERAPAMIL [Concomitant]
     Dosage: UNK
  2. VIAGRA [Suspect]
     Dosage: UNK
     Route: 048

REACTIONS (2)
  - HYPERTENSION [None]
  - FLUSHING [None]
